FAERS Safety Report 7904179-6 (Version None)
Quarter: 2011Q4

REPORT INFORMATION
  Report Type: 
  Country: None (occurrence: None)
  Receive Date: 20111109
  Receipt Date: 20111105
  Transmission Date: 20120403
  Serious: No
  Sender: FDA-Public Use
  Company Number: US-TEVA-308177USA

PATIENT
  Sex: Female
  Weight: 56.75 kg

DRUGS (4)
  1. PLAN B ONE-STEP [Suspect]
     Indication: POST COITAL CONTRACEPTION
     Dosage: 1.5 MILLIGRAM;
     Route: 048
     Dates: start: 20111105, end: 20111105
  2. ZOFRAN [Concomitant]
     Indication: CYCLIC VOMITING SYNDROME
     Dosage: 24 MILLIGRAM;
     Dates: start: 20111001
  3. ORTHO TRI-CYCLEN [Suspect]
     Indication: CONTRACEPTION
     Dates: start: 20110801
  4. ATIVAN [Concomitant]
     Indication: CYCLIC VOMITING SYNDROME
     Dosage: .5 MILLIGRAM;
     Dates: start: 20111001

REACTIONS (1)
  - NAUSEA [None]
